FAERS Safety Report 22771995 (Version 5)
Quarter: 2023Q4

REPORT INFORMATION
  Report Type: Spontaneous
  Country: US (occurrence: US)
  Receive Date: 20230801
  Receipt Date: 20231115
  Transmission Date: 20240110
  Serious: No
  Sender: FDA-Public Use
  Company Number: US-PFIZER INC-PV202300130987

PATIENT
  Age: 36 Year
  Sex: Female

DRUGS (2)
  1. XELJANZ [Suspect]
     Active Substance: TOFACITINIB CITRATE
     Dosage: 5 MG
     Dates: end: 202309
  2. XELJANZ [Suspect]
     Active Substance: TOFACITINIB CITRATE
     Dosage: 5 MG
     Dates: start: 20230922

REACTIONS (5)
  - Nausea [Unknown]
  - Dysgeusia [Unknown]
  - Rash [Recovering/Resolving]
  - Ear infection [Unknown]
  - Bowel movement irregularity [Unknown]
